FAERS Safety Report 21052556 (Version 1)
Quarter: 2022Q3

REPORT INFORMATION
  Report Type: Spontaneous
  Country: JP (occurrence: JP)
  Receive Date: 20220707
  Receipt Date: 20220707
  Transmission Date: 20221026
  Serious: No
  Sender: FDA-Public Use
  Company Number: JP-MSD-M2022-25952

PATIENT
  Age: 66 Year
  Sex: Female

DRUGS (4)
  1. LAGEVRIO [Suspect]
     Active Substance: MOLNUPIRAVIR
     Indication: COVID-19 treatment
     Dosage: 600 MILLIGRAM, ONCE
     Route: 048
     Dates: start: 20220625, end: 20220625
  2. LAGEVRIO [Suspect]
     Active Substance: MOLNUPIRAVIR
     Dosage: 600 MILLIGRAM, BID
     Route: 048
     Dates: start: 20220626, end: 20220626
  3. LAGEVRIO [Suspect]
     Active Substance: MOLNUPIRAVIR
     Dosage: 600 MILLIGRAM, ONCE
     Route: 048
     Dates: start: 20220627, end: 20220627
  4. LAGEVRIO [Suspect]
     Active Substance: MOLNUPIRAVIR
     Dosage: 800 MILLIGRAM, BID
     Route: 048
     Dates: start: 20220627

REACTIONS (2)
  - Accidental underdose [Unknown]
  - Product use issue [Unknown]

NARRATIVE: CASE EVENT DATE: 20220625
